FAERS Safety Report 21281023 (Version 6)
Quarter: 2024Q4

REPORT INFORMATION
  Report Type: Report from Study
  Country: CA (occurrence: CA)
  Receive Date: 20220901
  Receipt Date: 20241226
  Transmission Date: 20250115
  Serious: Yes (Other)
  Sender: BIOCON
  Company Number: CA-MYLANLABS-2022M1080270

PATIENT

DRUGS (1)
  1. HULIO [Suspect]
     Active Substance: ADALIMUMAB-FKJP
     Indication: Juvenile idiopathic arthritis
     Dosage: 40 MILLIGRAM, BIWEEKLY
     Route: 058
     Dates: start: 20220414

REACTIONS (7)
  - Uveitis [Unknown]
  - Hypokinesia [Unknown]
  - Condition aggravated [Not Recovered/Not Resolved]
  - Arthritis [Unknown]
  - Product dose omission issue [Unknown]
  - Appetite disorder [Unknown]
  - Inappropriate schedule of product administration [Unknown]
